FAERS Safety Report 24922563 (Version 1)
Quarter: 2025Q1

REPORT INFORMATION
  Report Type: Spontaneous
  Country: US (occurrence: None)
  Receive Date: 20250204
  Receipt Date: 20250204
  Transmission Date: 20250408
  Serious: Yes (Disabling, Other)
  Sender: FDA-CTU
  Company Number: None

PATIENT
  Age: 29 Year
  Sex: Female
  Weight: 60.75 kg

DRUGS (1)
  1. STEM CELL EXOSOME GROWTH FACTOR DERIVED OTC PRODUCTS [Suspect]
     Active Substance: STEM CELL EXOSOME GROWTH FACTOR DERIVED OTC PRODUCTS
     Indication: Skin disorder

REACTIONS (8)
  - Migraine [None]
  - Urinary tract infection [None]
  - Insomnia [None]
  - Nausea [None]
  - Urticaria [None]
  - Syncope [None]
  - Palpitations [None]
  - Quality of life decreased [None]

NARRATIVE: CASE EVENT DATE: 20250117
